FAERS Safety Report 8170889-1 (Version None)
Quarter: 2012Q1

REPORT INFORMATION
  Report Type: 
  Country: None (occurrence: None)
  Receive Date: 20120104
  Receipt Date: 20111115
  Transmission Date: 20120608
  Serious: No
  Sender: FDA-Public Use
  Company Number: 2011HGS-002800

PATIENT
  Age: 49 Year
  Sex: Female
  Weight: 57.1532 kg

DRUGS (19)
  1. BUTRANS (BUPRENORPHINE) [Concomitant]
  2. LIBRAX (LIBRAX (SWE) (CHLORDIAZEPOXIDE HYDROCHLORIDE) [Concomitant]
  3. LASIX [Concomitant]
  4. MIRALAX [Concomitant]
  5. CLARINEX [Concomitant]
  6. TRAMADOL HCL [Concomitant]
  7. PROVENTIL [Concomitant]
  8. CARDIZEM CD [Concomitant]
  9. COZAAR [Concomitant]
  10. FOLIC ACID [Concomitant]
  11. CALCIUM (CALCIIUM) [Concomitant]
  12. BENLYSTA [Suspect]
     Indication: SYSTEMIC LUPUS ERYTHEMATOSUS
     Dosage: 1 IN 28 D, INTRAVENOUS DRIP
     Route: 041
     Dates: start: 20111020
  13. ZANAFLEX [Concomitant]
  14. CELLCEPT [Concomitant]
  15. NASONEX [Concomitant]
  16. MIRAPEX [Concomitant]
  17. FLEXERIL [Concomitant]
  18. DEXILANT (PROTON PUMP INHIBITORS) (DEXLANSOPRAZOLE) [Concomitant]
  19. PHENERGAN HCL [Concomitant]

REACTIONS (8)
  - NAUSEA [None]
  - DRY EYE [None]
  - BLOOD PRESSURE INCREASED [None]
  - FOOT FRACTURE [None]
  - FALL [None]
  - PAIN IN EXTREMITY [None]
  - OEDEMA PERIPHERAL [None]
  - FRACTURE [None]
